FAERS Safety Report 8436067-3 (Version None)
Quarter: 2012Q2

REPORT INFORMATION
  Report Type: 
  Country: None (occurrence: None)
  Receive Date: 20120614
  Receipt Date: 20120105
  Transmission Date: 20120825
  Serious: No
  Sender: FDA-Public Use
  Company Number: US-ASTRAZENECA-2012SE00983

PATIENT
  Sex: Male

DRUGS (2)
  1. TOPAMAX [Concomitant]
     Indication: PAIN
     Route: 048
  2. ZOLADEX [Suspect]
     Indication: NEOPLASM MALIGNANT
     Route: 058
     Dates: start: 20110908

REACTIONS (12)
  - LYMPHADENOPATHY [None]
  - PARANOIA [None]
  - BACK PAIN [None]
  - CHILLS [None]
  - HOT FLUSH [None]
  - PAIN [None]
  - SPINAL PAIN [None]
  - MOOD ALTERED [None]
  - DYSPHAGIA [None]
  - HYPERHIDROSIS [None]
  - NEUROPATHY PERIPHERAL [None]
  - PROSTATIC SPECIFIC ANTIGEN DECREASED [None]
